FAERS Safety Report 8600930-0 (Version None)
Quarter: 2012Q3

REPORT INFORMATION
  Report Type: 
  Country: None (occurrence: None)
  Receive Date: 20120817
  Receipt Date: 20120806
  Transmission Date: 20120928
  Serious: Yes (Hospitalization, Other)
  Sender: FDA-Public Use
  Company Number: DE-TEVA-352782GER

PATIENT
  Age: 63 Year
  Sex: Female
  Weight: 49 kg

DRUGS (2)
  1. MITOXANTRONE [Suspect]
     Indication: ACUTE MYELOID LEUKAEMIA
     Dosage: SEQUENTIAL HIGH DOSE, SHAM REGIMEN, WITHIN AMLCG-2008 STUDY
     Route: 065
  2. CYTARABINE [Suspect]
     Indication: ACUTE MYELOID LEUKAEMIA
     Dosage: SEQUENTIAL HIGH DOSE, SHAM REGIMEN, WITHIN AMLCG-2008 STUDY
     Route: 065

REACTIONS (5)
  - CARDIAC FAILURE [None]
  - ACUTE MYOCARDIAL INFARCTION [None]
  - MITRAL VALVE INCOMPETENCE [None]
  - PNEUMONIA CRYPTOCOCCAL [None]
  - BONE MARROW FAILURE [None]
